FAERS Safety Report 5055925-3 (Version None)
Quarter: 2006Q3

REPORT INFORMATION
  Report Type: 
  Country: None (occurrence: None)
  Receive Date: 20060717
  Receipt Date: 20060717
  Transmission Date: 20061208
  Serious: Yes (Life-Threatening, Other)
  Sender: FDA-Public Use
  Company Number: None

PATIENT
  Age: 96 Year
  Sex: Female
  Weight: 54.4316 kg

DRUGS (1)
  1. GENTAMICIN [Suspect]
     Indication: EYE INFECTION
     Dosage: 1 TO 2 DROPS   3 TO 4 TIMES A DAY   OPHTHALMIC
     Route: 047
     Dates: start: 20060710, end: 20060713

REACTIONS (2)
  - ABNORMAL BEHAVIOUR [None]
  - HALLUCINATION [None]
